FAERS Safety Report 6645566-6 (Version None)
Quarter: 2010Q1

REPORT INFORMATION
  Report Type: 
  Country: None (occurrence: None)
  Receive Date: 20100323
  Receipt Date: 20100308
  Transmission Date: 20100710
  Serious: No
  Sender: FDA-Public Use
  Company Number: 2009BI031347

PATIENT
  Age: 35 Year
  Sex: Male

DRUGS (1)
  1. TYSABRI [Suspect]
     Indication: MULTIPLE SCLEROSIS
     Route: 042
     Dates: start: 20081226

REACTIONS (7)
  - FAECAL INCONTINENCE [None]
  - FALL [None]
  - JOINT INJURY [None]
  - LIGAMENT RUPTURE [None]
  - MENISCUS LESION [None]
  - MUSCULAR WEAKNESS [None]
  - URINARY INCONTINENCE [None]
